FAERS Safety Report 10052882 (Version 1)
Quarter: 2014Q1

REPORT INFORMATION
  Report Type: Spontaneous
  Country: GB (occurrence: None)
  Receive Date: 20140331
  Receipt Date: 20140331
  Transmission Date: 20141002
  Serious: Yes (Death)
  Sender: FDA-Public Use
  Company Number: 2014P1002687

PATIENT
  Age: 35 Year
  Sex: Male

DRUGS (1)
  1. CEFTAZIDIME [Suspect]

REACTIONS (1)
  - Death [None]
